FAERS Safety Report 7004568-0 (Version None)
Quarter: 2010Q3

REPORT INFORMATION
  Report Type: 
  Country: None (occurrence: None)
  Receive Date: 20100921
  Receipt Date: 20100916
  Transmission Date: 20110219
  Serious: Yes (Other)
  Sender: FDA-Public Use
  Company Number: US-ASTRAZENECA-2009UW00925

PATIENT
  Age: 555 Month
  Sex: Female

DRUGS (10)
  1. SEROQUEL [Suspect]
     Indication: ANXIETY
     Dosage: 50 MG TO 100 MG
     Route: 048
     Dates: start: 20030501, end: 20070701
  2. SEROQUEL [Suspect]
     Route: 048
     Dates: start: 20030619
  3. DIAZEPAM [Concomitant]
     Indication: ANXIETY
     Route: 048
     Dates: start: 20030423
  4. LISINOPRIL [Concomitant]
     Route: 048
     Dates: start: 20021029
  5. PREVACID [Concomitant]
     Route: 048
     Dates: start: 20060401
  6. VALIUM [Concomitant]
     Dates: start: 20060401
  7. TYLENOL [Concomitant]
     Dates: start: 20060401
  8. ULTRAM [Concomitant]
     Dates: start: 20060401
  9. ULTRACET [Concomitant]
     Dates: start: 20060401
  10. XANAX [Concomitant]
     Indication: ANXIETY
     Dates: start: 20050501

REACTIONS (3)
  - DIABETES MELLITUS [None]
  - NEUROPATHY PERIPHERAL [None]
  - TYPE 2 DIABETES MELLITUS [None]
